FAERS Safety Report 5643335-7 (Version None)
Quarter: 2008Q1

REPORT INFORMATION
  Report Type: 
  Country: None (occurrence: None)
  Receive Date: 20080228
  Receipt Date: 20080220
  Transmission Date: 20080703
  Serious: Yes (Hospitalization)
  Sender: FDA-Public Use
  Company Number: JP-JNJFOC-20080204843

PATIENT
  Age: 4 Year
  Sex: Female

DRUGS (9)
  1. TOPIRAMATE [Suspect]
     Route: 048
  2. TOPIRAMATE [Suspect]
     Indication: EPILEPSY
     Route: 048
  3. DEPAKENE [Concomitant]
     Route: 048
  4. CONTOL [Concomitant]
     Route: 048
  5. TERNELIN [Concomitant]
     Route: 048
  6. LASIX [Concomitant]
     Route: 065
  7. ALDACTONE [Concomitant]
     Route: 048
  8. INTAL [Concomitant]
     Route: 065
  9. ALFAROL [Concomitant]
     Route: 048

REACTIONS (1)
  - INTERSTITIAL LUNG DISEASE [None]
